FAERS Safety Report 23839715 (Version 1)
Quarter: 2024Q2

REPORT INFORMATION
  Report Type: Report from Study
  Country: US (occurrence: US)
  Receive Date: 20240510
  Receipt Date: 20240510
  Transmission Date: 20240716
  Serious: Yes (Hospitalization)
  Sender: FDA-Public Use
  Company Number: US-JNJFOC-20240410704

PATIENT
  Age: 50 Year
  Sex: Male
  Weight: 62.5 kg

DRUGS (3)
  1. EPOPROSTENOL SODIUM [Suspect]
     Active Substance: EPOPROSTENOL SODIUM
     Indication: Pulmonary hypertension
     Route: 042
  2. EPOPROSTENOL SODIUM [Suspect]
     Active Substance: EPOPROSTENOL SODIUM
     Route: 042
  3. SILDENAFIL CITRATE [Concomitant]
     Active Substance: SILDENAFIL CITRATE

REACTIONS (9)
  - Pneumonia bacterial [Unknown]
  - Infection [Unknown]
  - Bacterial abdominal infection [Unknown]
  - Injection site pain [Unknown]
  - Food poisoning [Unknown]
  - Pharyngeal swelling [Unknown]
  - Streptococcal infection [Unknown]
  - Lymphadenopathy [Unknown]
  - Swelling face [Unknown]

NARRATIVE: CASE EVENT DATE: 20240401
